FAERS Safety Report 7052277-4 (Version None)
Quarter: 2010Q4

REPORT INFORMATION
  Report Type: 
  Country: None (occurrence: None)
  Receive Date: 20101018
  Receipt Date: 20101018
  Transmission Date: 20110411
  Serious: Yes (Hospitalization, Other)
  Sender: FDA-Public Use
  Company Number: None

PATIENT
  Sex: Female

DRUGS (2)
  1. SAPHRIS [Suspect]
     Indication: MANIA
     Dosage: 1 TABLET ONCE SL
     Route: 060
     Dates: start: 20091116, end: 20091116
  2. PROZAC [Concomitant]

REACTIONS (10)
  - DIZZINESS [None]
  - DYSPHAGIA [None]
  - DYSPNOEA [None]
  - DYSSTASIA [None]
  - HYPOAESTHESIA ORAL [None]
  - MOTOR DYSFUNCTION [None]
  - MOVEMENT DISORDER [None]
  - MUSCULAR WEAKNESS [None]
  - SPEECH DISORDER [None]
  - TREMOR [None]
